FAERS Safety Report 8937096 (Version 1)
Quarter: 2012Q4

REPORT INFORMATION
  Report Type: Spontaneous
  Country: US (occurrence: None)
  Receive Date: 20121128
  Receipt Date: 20121128
  Transmission Date: 20130627
  Serious: Yes (Hospitalization)
  Sender: FDA-Public Use
  Company Number: None

PATIENT
  Age: 85 Year
  Sex: Male

DRUGS (1)
  1. LANTUS [Suspect]
     Dosage: 50 units bid sq
     Route: 058

REACTIONS (3)
  - Chronic obstructive pulmonary disease [None]
  - Hypoglycaemia [None]
  - Therapy regimen changed [None]
